FAERS Safety Report 10303478 (Version 3)
Quarter: 2014Q4

REPORT INFORMATION
  Report Type: Spontaneous
  Country: DK (occurrence: DK)
  Receive Date: 20140714
  Receipt Date: 20141024
  Transmission Date: 20150528
  Serious: Yes (Other)
  Sender: FDA-Public Use
  Company Number: DK-FRI-1000068968

PATIENT
  Age: 56 Year
  Sex: Male
  Weight: 130 kg

DRUGS (5)
  1. COZAAR COMP 100MG+12.5MG [Concomitant]
     Indication: HYPERTENSION
     Dates: start: 20110216
  2. ESCITALOPRAM [Suspect]
     Active Substance: ESCITALOPRAM OXALATE
     Indication: ANXIETY
     Dosage: 10 MG
     Route: 048
     Dates: start: 20101020, end: 20131004
  3. CISORDINOL TABLETTER [Concomitant]
     Indication: MENTAL DISORDER
     Dosage: 10MG+0+0+20MG
  4. NOZINAN [Concomitant]
     Active Substance: LEVOMEPROMAZINE
     Indication: MENTAL DISORDER
     Dates: start: 19950721
  5. CISORDINOL DEPOT INJEKTION [Concomitant]
     Indication: MENTAL DISORDER
     Dates: start: 20040914

REACTIONS (3)
  - Electrocardiogram QT prolonged [Recovered/Resolved]
  - Bundle branch block right [Recovered/Resolved]
  - Atrioventricular block first degree [Recovered/Resolved]

NARRATIVE: CASE EVENT DATE: 20130929
